FAERS Safety Report 24618141 (Version 1)
Quarter: 2024Q4

REPORT INFORMATION
  Report Type: Spontaneous
  Country: DE (occurrence: DE)
  Receive Date: 20241114
  Receipt Date: 20241114
  Transmission Date: 20250115
  Serious: Yes (Hospitalization, Other)
  Sender: DR REDDYS
  Company Number: DE-GERMAN-LIT/DEU/24/0016666

PATIENT
  Age: 25 Year
  Sex: Female

DRUGS (24)
  1. LACOSAMIDE [Suspect]
     Active Substance: LACOSAMIDE
     Indication: Status epilepticus
     Dosage: 500 MG/D
     Dates: start: 2010
  2. LACOSAMIDE [Suspect]
     Active Substance: LACOSAMIDE
     Dosage: 500 MG/D
     Dates: start: 2016
  3. LACOSAMIDE [Suspect]
     Active Substance: LACOSAMIDE
     Dosage: 500 MG/D
     Dates: start: 2020
  4. LACOSAMIDE [Suspect]
     Active Substance: LACOSAMIDE
     Dosage: 500 MG/D
     Dates: start: 2023
  5. LEVETIRACETAM [Suspect]
     Active Substance: LEVETIRACETAM
     Indication: Status epilepticus
     Dosage: 500 MG/D
     Dates: start: 2010, end: 2020
  6. VALPROIC ACID [Suspect]
     Active Substance: VALPROIC ACID
     Indication: Status epilepticus
     Dosage: 500 MG/D
     Dates: start: 2010
  7. EVEROLIMUS [Suspect]
     Active Substance: EVEROLIMUS
     Indication: Status epilepticus
     Dosage: 500 MG/D
     Dates: start: 2023
  8. EVEROLIMUS [Suspect]
     Active Substance: EVEROLIMUS
     Dosage: 500 MG/D
     Dates: start: 2020
  9. VIGABATRIN [Concomitant]
     Active Substance: VIGABATRIN
     Indication: Status epilepticus
     Dosage: 500 MG/D
     Dates: start: 1998
  10. SULTHIAME [Concomitant]
     Active Substance: SULTHIAME
     Indication: Status epilepticus
     Dosage: 500 MG/D
     Dates: start: 2000
  11. Methosuximide [Concomitant]
     Indication: Status epilepticus
  12. PREGABALIN [Concomitant]
     Active Substance: PREGABALIN
     Indication: Status epilepticus
  13. PRIMIDONE [Concomitant]
     Active Substance: PRIMIDONE
     Indication: Status epilepticus
  14. ZONISAMIDE [Concomitant]
     Active Substance: ZONISAMIDE
     Indication: Status epilepticus
  15. TOPIRAMATE [Concomitant]
     Active Substance: TOPIRAMATE
     Indication: Status epilepticus
     Dates: start: 2022
  16. TOPIRAMATE [Concomitant]
     Active Substance: TOPIRAMATE
     Dates: start: 2000
  17. PHENYTOIN [Concomitant]
     Active Substance: PHENYTOIN
     Indication: Status epilepticus
     Dates: start: 2008, end: 2020
  18. CLOBAZAM [Concomitant]
     Active Substance: CLOBAZAM
     Indication: Status epilepticus
     Dates: start: 2014
  19. RUFINAMIDE [Concomitant]
     Active Substance: RUFINAMIDE
     Indication: Status epilepticus
     Dates: start: 2015
  20. CANNABIDIOL [Concomitant]
     Active Substance: CANNABIDIOL
     Indication: Status epilepticus
     Dates: start: 2020
  21. BRIVARACETAM [Concomitant]
     Active Substance: BRIVARACETAM
     Indication: Status epilepticus
     Dates: start: 2020, end: 2022
  22. PERAMPANEL [Concomitant]
     Active Substance: PERAMPANEL
     Indication: Status epilepticus
     Dates: start: 2022, end: 2023
  23. PHENOBARBITAL [Concomitant]
     Active Substance: PHENOBARBITAL
     Indication: Status epilepticus
     Dates: start: 2022
  24. PROPOFOL [Concomitant]
     Active Substance: PROPOFOL
     Indication: Induction of anaesthesia
     Dates: start: 20221103, end: 20221109

REACTIONS (2)
  - Drug resistance [Unknown]
  - Product use in unapproved indication [Unknown]
